FAERS Safety Report 13161134 (Version 1)
Quarter: 2017Q1

REPORT INFORMATION
  Report Type: Spontaneous
  Country: US (occurrence: US)
  Receive Date: 20170130
  Receipt Date: 20170130
  Transmission Date: 20170428
  Serious: Yes (Other)
  Sender: FDA-Public Use
  Company Number: US-AMGEN-USASP2017012681

PATIENT
  Sex: Female

DRUGS (3)
  1. ENBREL [Suspect]
     Active Substance: ETANERCEPT
     Indication: PSORIATIC ARTHROPATHY
     Dosage: 25 MG, TWICE WEEKLY
     Route: 058
  2. METHOTREXATE. [Suspect]
     Active Substance: METHOTREXATE
     Indication: PRODUCT USED FOR UNKNOWN INDICATION
     Dosage: 10-25 MG, QWK
     Route: 065
  3. PREDNISONE. [Concomitant]
     Active Substance: PREDNISONE
     Dosage: 10-30 MG, QD
     Route: 065

REACTIONS (3)
  - Osteomyelitis [Unknown]
  - Treatment failure [Unknown]
  - Infected skin ulcer [Unknown]
